FAERS Safety Report 9124376 (Version 1)
Quarter: 2013Q1

REPORT INFORMATION
  Report Type: Spontaneous
  Country: FR (occurrence: FR)
  Receive Date: 20130227
  Receipt Date: 20130227
  Transmission Date: 20140127
  Serious: Yes (Death, Hospitalization)
  Sender: FDA-Public Use
  Company Number: PHHY2013FR018629

PATIENT
  Age: 36 Year
  Sex: Female

DRUGS (2)
  1. LEELOO [Suspect]
     Indication: CONTRACEPTION
     Route: 048
     Dates: start: 2012
  2. PARACETAMOL [Concomitant]
     Dosage: 1 DF, PRN

REACTIONS (6)
  - Cerebral thrombosis [Fatal]
  - Headache [Fatal]
  - Dizziness [Fatal]
  - Convulsion [Fatal]
  - Pupil fixed [Fatal]
  - Pupils unequal [Fatal]
